FAERS Safety Report 8420104-6 (Version None)
Quarter: 2012Q2

REPORT INFORMATION
  Report Type: 
  Country: None (occurrence: None)
  Receive Date: 20120607
  Receipt Date: 20120530
  Transmission Date: 20120825
  Serious: Yes (Other)
  Sender: FDA-Public Use
  Company Number: BR-ABBOTT-12P-020-0941143-00

PATIENT
  Sex: Female
  Weight: 69 kg

DRUGS (3)
  1. SYNTHROID [Suspect]
     Indication: HYPOTHYROIDISM
     Route: 048
     Dates: start: 20120524
  2. SYNTHROID [Suspect]
     Route: 048
     Dates: start: 20120525
  3. SYNTHROID [Suspect]
     Route: 048

REACTIONS (2)
  - SYNCOPE [None]
  - HEART RATE INCREASED [None]
